FAERS Safety Report 24251890 (Version 1)
Quarter: 2024Q3

REPORT INFORMATION
  Report Type: Spontaneous
  Country: US (occurrence: US)
  Receive Date: 20240827
  Receipt Date: 20240827
  Transmission Date: 20241017
  Serious: Yes (Other)
  Sender: BRISTOL MYERS SQUIBB
  Company Number: US-BRISTOL-MYERS SQUIBB COMPANY-2024-134869

PATIENT
  Age: 84 Year
  Sex: Female
  Weight: 78.93 kg

DRUGS (5)
  1. POMALYST [Suspect]
     Active Substance: POMALIDOMIDE
     Indication: Plasma cell myeloma
     Dosage: FREQUENCY: TAKE (1) CAPSULES=1 MG BY MOUTH ONCE DAILY FOR 21 DAYS ON AND 7 DAYS OFF, WITH OR WITHOUT
     Route: 048
  2. ACYCLOVIR [Concomitant]
     Active Substance: ACYCLOVIR
     Route: 048
  3. FARXIGA [Concomitant]
     Active Substance: DAPAGLIFLOZIN PROPANEDIOL
     Route: 048
  4. MONTELUKAST [Concomitant]
     Active Substance: MONTELUKAST SODIUM
     Dosage: FREQUENCY: TAKE 1 PILL 5 DAYS PRIOR TO INFUSION AND SECOND PILL ON THE DAY OF INFUSION
     Route: 048
  5. MIDODRINE [Concomitant]
     Active Substance: MIDODRINE
     Dosage: FREQUENCY: ONE TAB MORNING + NOON THEN 2 TABS AT 5PM
     Route: 048
     Dates: start: 20130610

REACTIONS (1)
  - Neutropenia [Unknown]
